FAERS Safety Report 5082526-3 (Version None)
Quarter: 2006Q3

REPORT INFORMATION
  Report Type: 
  Country: None (occurrence: None)
  Receive Date: 20060817
  Receipt Date: 20060706
  Transmission Date: 20061208
  Serious: Yes (Other)
  Sender: FDA-Public Use
  Company Number: SE-ROCHE-454148

PATIENT
  Age: 24 Year
  Sex: Female

DRUGS (1)
  1. LARIAM [Suspect]
     Indication: MALARIA PROPHYLAXIS
     Route: 048
     Dates: start: 20060613, end: 20060620

REACTIONS (4)
  - ANGIONEUROTIC OEDEMA [None]
  - ANXIETY [None]
  - DYSPNOEA [None]
  - SENSATION OF FOREIGN BODY [None]
